FAERS Safety Report 9786434 (Version 1)
Quarter: 2013Q4

REPORT INFORMATION
  Report Type: Spontaneous
  Country: DK (occurrence: FR)
  Receive Date: 20131227
  Receipt Date: 20131227
  Transmission Date: 20140711
  Serious: Yes (Death)
  Sender: FDA-Public Use
  Company Number: FR-FRI-1000052478

PATIENT
  Age: 67 Year
  Sex: Female

DRUGS (12)
  1. ESCITALOPRAM [Suspect]
     Dates: end: 20131110
  2. SOTALOL [Suspect]
     Dosage: 2 DF
     Dates: end: 20131110
  3. FLUDEX [Suspect]
     Dosage: 1.5 MG
     Route: 048
     Dates: end: 20131110
  4. HEXAQUINE [Suspect]
     Dosage: 1 DF
     Dates: end: 20131110
  5. RILMENIDINE [Concomitant]
     Dosage: 2 MG
  6. PRAXILENE [Concomitant]
     Dosage: 400 MG
  7. ONGLYZA [Concomitant]
     Dosage: 5 MG
  8. PREVISCAN [Concomitant]
     Dosage: 1.25 DF
  9. COVERSYL [Concomitant]
  10. BACLOFENE [Concomitant]
     Dosage: 30 MG
  11. LEXOMIL [Concomitant]
     Dosage: 1 DF
  12. DOLIPRANE CODEINE [Concomitant]

REACTIONS (2)
  - Electrocardiogram QT prolonged [Fatal]
  - Cardiac arrest [Fatal]
